FAERS Safety Report 5309107-8 (Version None)
Quarter: 2007Q2

REPORT INFORMATION
  Report Type: 
  Country: None (occurrence: None)
  Receive Date: 20070426
  Receipt Date: 20070419
  Transmission Date: 20071010
  Serious: Yes (Death, Hospitalization)
  Sender: FDA-Public Use
  Company Number: US-MERCK-0704USA04372

PATIENT
  Age: 66 Year
  Sex: Male

DRUGS (17)
  1. COZAAR [Suspect]
     Indication: HYPERTENSION
     Route: 048
     Dates: start: 20050301
  2. LOVENOX [Concomitant]
     Route: 065
  3. GLIPIZIDE [Concomitant]
     Route: 065
  4. COREG [Concomitant]
     Route: 065
  5. NORVASC [Concomitant]
     Route: 065
  6. FOLTX [Concomitant]
     Route: 065
  7. NIFEDIPINE [Concomitant]
     Route: 065
  8. PLAVIX [Concomitant]
     Route: 065
  9. ZOCOR [Concomitant]
     Route: 048
  10. LASIX [Concomitant]
     Route: 065
  11. REMINYL [Concomitant]
     Route: 065
  12. SYNTHROID [Concomitant]
     Route: 065
  13. PROZAC [Concomitant]
     Route: 065
  14. IMDUR [Concomitant]
     Route: 065
  15. QUININE [Concomitant]
     Route: 065
  16. ASPIRIN [Concomitant]
     Route: 065
  17. AVANDIA [Concomitant]
     Route: 065

REACTIONS (3)
  - CARDIAC FAILURE CONGESTIVE [None]
  - MYOCARDIAL INFARCTION [None]
  - RENAL FAILURE [None]
